FAERS Safety Report 19737769 (Version 1)
Quarter: 2021Q3

REPORT INFORMATION
  Report Type: Spontaneous
  Country: US (occurrence: US)
  Receive Date: 20210820
  Receipt Date: 20210820
  Transmission Date: 20211014
  Serious: No
  Sender: FDA-Public Use
  Company Number: None

PATIENT
  Age: 30 Year
  Sex: Female

DRUGS (1)
  1. STELARA [Suspect]
     Active Substance: USTEKINUMAB
     Indication: PROCTITIS ULCERATIVE
     Dosage: OTHER FREQUENCY:EVERY 8 WEEKS ;?
     Route: 058
     Dates: start: 202101

REACTIONS (1)
  - Headache [None]

NARRATIVE: CASE EVENT DATE: 202101
